FAERS Safety Report 9272186 (Version 1)
Quarter: 2013Q2

REPORT INFORMATION
  Report Type: Spontaneous
  Country: US (occurrence: US)
  Receive Date: 20130506
  Receipt Date: 20130506
  Transmission Date: 20140414
  Serious: No
  Sender: FDA-Public Use
  Company Number: US-ASTRAZENECA-2013SE06731

PATIENT
  Age: 96 Year
  Sex: Female

DRUGS (3)
  1. PRILOSEC OTC [Suspect]
     Indication: GALLBLADDER DISORDER
     Route: 048
  2. ANTIHYPERTENSIVES [Concomitant]
  3. VITAMINS NOS [Concomitant]

REACTIONS (3)
  - Hair disorder [Unknown]
  - Off label use [Unknown]
  - Incorrect drug administration duration [Unknown]
